FAERS Safety Report 5454354-8 (Version None)
Quarter: 2007Q3

REPORT INFORMATION
  Report Type: 
  Country: None (occurrence: None)
  Receive Date: 20070917
  Receipt Date: 20070905
  Transmission Date: 20080115
  Serious: Yes (Other)
  Sender: FDA-Public Use
  Company Number: GB-PFIZER INC-2007074362

PATIENT
  Age: 60 Year
  Sex: Male
  Weight: 94 kg

DRUGS (8)
  1. VARENICLINE TABLETS [Suspect]
     Indication: SMOKING CESSATION THERAPY
     Route: 048
     Dates: start: 20070202, end: 20070405
  2. AMOXICILLIN [Concomitant]
  3. AMPHOTERICIN B [Concomitant]
  4. CO-CODAMOL [Concomitant]
     Route: 048
  5. GAVISCON [Concomitant]
  6. NYSTATIN [Concomitant]
  7. PREDNISOLONE [Concomitant]
  8. ALBUTEROL [Concomitant]
     Route: 055

REACTIONS (1)
  - DIPLOPIA [None]
